FAERS Safety Report 12699678 (Version 1)
Quarter: 2016Q3

REPORT INFORMATION
  Report Type: Report from Study
  Country: US (occurrence: US)
  Receive Date: 20160830
  Receipt Date: 20160830
  Transmission Date: 20161109
  Serious: No
  Sender: FDA-Public Use
  Company Number: PHEH2016US021858

PATIENT
  Age: 47 Year
  Sex: Female
  Weight: 115 kg

DRUGS (2)
  1. SANDOSTATIN LAR DEPOT [Suspect]
     Active Substance: OCTREOTIDE ACETATE
     Indication: NEUROENDOCRINE TUMOUR
     Route: 030
     Dates: start: 20150601
  2. LANREOTIDE [Suspect]
     Active Substance: LANREOTIDE
     Indication: HYPERPLASIA
     Route: 065
     Dates: start: 20150601

REACTIONS (3)
  - Abdominal discomfort [Recovering/Resolving]
  - Malaise [Recovered/Resolved]
  - Diarrhoea [Recovering/Resolving]

NARRATIVE: CASE EVENT DATE: 20150601
